FAERS Safety Report 8006196-7 (Version None)
Quarter: 2011Q4

REPORT INFORMATION
  Report Type: 
  Country: None (occurrence: None)
  Receive Date: 20111226
  Receipt Date: 20111220
  Transmission Date: 20120403
  Serious: Yes (Death)
  Sender: FDA-Public Use
  Company Number: PHHY2011CA89863

PATIENT
  Sex: Female

DRUGS (6)
  1. FRAGMIN [Concomitant]
     Dosage: 5000 UNITS DAILY S/C ( IN A PERIOD OF TRANSITION)
  2. LACTULOSE [Concomitant]
     Dosage: 30 ML, BID
  3. ACETAMINOPHEN [Concomitant]
     Dosage: 650 MG, BID
  4. CLOZARIL [Suspect]
     Indication: PSYCHOTIC DISORDER
     Dosage: FLUCTUATION DOSE BETWEEN 18.5 AND 25 MG HS
     Route: 048
     Dates: start: 20110311, end: 20110920
  5. COUMADIN [Concomitant]
     Dosage: 4 MG
  6. MEMANTINE HYDROCHLORIDE [Concomitant]
     Dosage: 10 MG, BID

REACTIONS (2)
  - PNEUMONIA ASPIRATION [None]
  - CEREBROVASCULAR ACCIDENT [None]
